FAERS Safety Report 24714893 (Version 1)
Quarter: 2024Q4

REPORT INFORMATION
  Report Type: Other
  Country: CA (occurrence: CA)
  Receive Date: 20241210
  Receipt Date: 20241210
  Transmission Date: 20250115
  Serious: Yes (Hospitalization, Disabling, Other)
  Sender: APOTEX
  Company Number: CA-APOTEX-2024AP019242

PATIENT
  Age: 71 Year
  Sex: Male

DRUGS (1)
  1. TENOFOVIR [Suspect]
     Active Substance: TENOFOVIR
     Indication: Hepatitis B
     Dosage: 1 DOSAGE FORM, QD
     Route: 048

REACTIONS (2)
  - Hip fracture [Recovering/Resolving]
  - Fanconi syndrome [Recovering/Resolving]
